FAERS Safety Report 9329537 (Version 1)
Quarter: 2013Q2

REPORT INFORMATION
  Report Type: Spontaneous
  Country: FR (occurrence: FR)
  Receive Date: 20130604
  Receipt Date: 20130604
  Transmission Date: 20140414
  Serious: Yes (Hospitalization)
  Sender: FDA-Public Use
  Company Number: FR-PFIZER INC-2013163807

PATIENT
  Age: 32 Year
  Sex: Male

DRUGS (13)
  1. ADVIL [Suspect]
     Dosage: 800 MG, 1X/DAY
     Route: 048
     Dates: start: 20130413, end: 20130414
  2. TOPILEXIL [Concomitant]
     Indication: UPPER RESPIRATORY TRACT INFECTION
     Dosage: UNK
     Dates: start: 20130406, end: 201304
  3. PYOSTACINE [Concomitant]
     Indication: UPPER RESPIRATORY TRACT INFECTION
     Dosage: UNK
     Dates: start: 20130406, end: 201304
  4. LOCABIOTAL [Concomitant]
     Indication: UPPER RESPIRATORY TRACT INFECTION
     Dosage: UNK
     Dates: start: 20100406, end: 201304
  5. AUGMENTIN [Concomitant]
     Indication: UPPER RESPIRATORY TRACT INFECTION
     Dosage: UNK
     Dates: start: 201304, end: 201304
  6. SPIFEN [Concomitant]
     Indication: UPPER RESPIRATORY TRACT INFECTION
     Dosage: UNK
     Route: 048
     Dates: start: 201304, end: 201304
  7. NASACORT [Concomitant]
     Indication: UPPER RESPIRATORY TRACT INFECTION
     Dosage: UNK
     Dates: start: 201304, end: 201304
  8. BACICOLINE [Concomitant]
     Indication: CONJUNCTIVITIS
     Dosage: UNK
     Dates: start: 20130412
  9. DACRYOSERUM [Concomitant]
     Indication: CONJUNCTIVITIS
     Dosage: UNK
     Dates: start: 20130412
  10. MAXIDROL [Concomitant]
     Indication: CONJUNCTIVITIS
     Dosage: UNK
     Dates: start: 20130412
  11. INORIAL [Concomitant]
     Indication: CONJUNCTIVITIS
     Dosage: 1 DF, SINGLE
     Dates: start: 20130412, end: 20130412
  12. INORIAL [Concomitant]
     Dosage: 2 DF, SINGLE
     Dates: start: 20130413, end: 20130413
  13. LIPANTHYL [Concomitant]
     Dosage: UNK
     Route: 048
     Dates: start: 2011

REACTIONS (1)
  - Pancreatitis acute [Recovered/Resolved]
